FAERS Safety Report 6532082-5 (Version None)
Quarter: 2010Q1

REPORT INFORMATION
  Report Type: 
  Country: None (occurrence: None)
  Receive Date: 20100108
  Receipt Date: 20091231
  Transmission Date: 20100710
  Serious: Yes (Death, Hospitalization)
  Sender: FDA-Public Use
  Company Number: GXKR2009GB13962

PATIENT
  Age: 71 Year
  Sex: Male

DRUGS (6)
  1. RIFAMPICIN [Interacting]
     Indication: TUBERCULOSIS
     Dosage: UNK
     Route: 065
     Dates: start: 20081101
  2. WARFARIN (NGX) [Interacting]
     Dosage: UNK
     Route: 065
     Dates: start: 20081101
  3. ETHAMBUTOL HYDROCHLORIDE [Interacting]
     Indication: TUBERCULOSIS
     Dosage: UNK
     Route: 065
     Dates: start: 20081101
  4. ISONIAZID [Interacting]
     Indication: TUBERCULOSIS
     Dosage: UNK
     Route: 065
     Dates: start: 20081101
  5. TICE BCG [Suspect]
     Indication: BLADDER CANCER
     Dosage: 81 MG, UNK
     Route: 043
     Dates: start: 20071101, end: 20081103
  6. WARFARIN SODIUM [Concomitant]
     Dosage: UNK
     Route: 065
     Dates: start: 20081101

REACTIONS (13)
  - ASCITES [None]
  - BLADDER PERFORATION [None]
  - BLOOD ALBUMIN DECREASED [None]
  - BLOOD CREATININE INCREASED [None]
  - BOVINE TUBERCULOSIS [None]
  - DEATH [None]
  - DRUG INTERACTION [None]
  - HAEMOGLOBIN DECREASED [None]
  - INTERNATIONAL NORMALISED RATIO INCREASED [None]
  - LOSS OF CONSCIOUSNESS [None]
  - MELAENA [None]
  - TACHYCARDIA [None]
  - TACHYPNOEA [None]
